FAERS Safety Report 25429623 (Version 1)
Quarter: 2025Q2

REPORT INFORMATION
  Report Type: Spontaneous
  Country: US (occurrence: None)
  Receive Date: 20250612
  Receipt Date: 20250612
  Transmission Date: 20250716
  Serious: Yes (Disabling)
  Sender: FDA-CTU
  Company Number: None

PATIENT
  Age: 48 Year
  Sex: Female
  Weight: 67 kg

DRUGS (10)
  1. VENLAFAXINE HYDROCHLORIDE [Suspect]
     Active Substance: VENLAFAXINE HYDROCHLORIDE
     Indication: Emotional distress
     Route: 048
  2. DESOGESTREL [Concomitant]
     Active Substance: DESOGESTREL
  3. CLOPIDOGREL [Concomitant]
     Active Substance: CLOPIDOGREL BISULFATE
  4. MELATONIN [Concomitant]
     Active Substance: MELATONIN
  5. dormix [Concomitant]
  6. MICARDIS [Concomitant]
     Active Substance: TELMISARTAN
  7. Dormix is antihistamine based sleeping pill in Finland [Concomitant]
  8. Puhdas magnesium [Concomitant]
  9. puhdas l-theanine [Concomitant]
  10. puhdas lactic acid bacyeria [Concomitant]

REACTIONS (24)
  - Withdrawal syndrome [None]
  - Anxiety [None]
  - Insomnia [None]
  - Nightmare [None]
  - Diarrhoea [None]
  - Chills [None]
  - Chills [None]
  - Myoclonus [None]
  - Nightmare [None]
  - Hyperarousal [None]
  - Fear [None]
  - Burning sensation [None]
  - Tinnitus [None]
  - Cognitive disorder [None]
  - Visual impairment [None]
  - Auditory disorder [None]
  - Balance disorder [None]
  - Impaired driving ability [None]
  - Head discomfort [None]
  - Emotional distress [None]
  - Exercise tolerance decreased [None]
  - Mental disorder [None]
  - Muscle spasms [None]
  - Quality of life decreased [None]

NARRATIVE: CASE EVENT DATE: 20241117
